FAERS Safety Report 8496293-4 (Version None)
Quarter: 2012Q3

REPORT INFORMATION
  Report Type: 
  Country: None (occurrence: None)
  Receive Date: 20120709
  Receipt Date: 20120629
  Transmission Date: 20120928
  Serious: Yes (Other)
  Sender: FDA-Public Use
  Company Number: US-JNJFOC-20120408695

PATIENT
  Sex: Male
  Weight: 67.13 kg

DRUGS (15)
  1. TAURINE [Suspect]
     Route: 048
  2. ARGININE [Suspect]
  3. TAURINE [Suspect]
     Indication: CARDIAC DISORDER
     Route: 048
     Dates: start: 20120101
  4. METOPROLOL [Concomitant]
     Indication: BLOOD PRESSURE
     Route: 048
  5. ARGININE [Suspect]
     Indication: ARRHYTHMIA
  6. TAURINE [Suspect]
     Route: 048
  7. XARELTO [Suspect]
     Indication: CEREBROVASCULAR ACCIDENT PROPHYLAXIS
     Route: 048
     Dates: start: 20120401
  8. XARELTO [Suspect]
     Indication: ATRIAL FIBRILLATION
     Route: 048
     Dates: start: 20120401
  9. TAURINE [Suspect]
     Indication: ARRHYTHMIA
     Route: 048
     Dates: start: 20120101
  10. TAURINE [Suspect]
     Route: 048
  11. AVODART [Concomitant]
     Indication: NEOPLASM PROPHYLAXIS
     Route: 048
     Dates: start: 20020101
  12. TAURINE [Suspect]
     Route: 048
  13. METOPROLOL [Concomitant]
     Indication: ARRHYTHMIA
     Route: 048
  14. AMIODARONE HCL [Concomitant]
     Indication: CARDIAC DISORDER
     Route: 048
     Dates: start: 20120101
  15. AVODART [Concomitant]
     Indication: PROSTATOMEGALY
     Route: 048
     Dates: start: 20020101

REACTIONS (12)
  - TOOTH INJURY [None]
  - ORAL PAIN [None]
  - PARAESTHESIA [None]
  - TACHYCARDIA [None]
  - SINUS BRADYCARDIA [None]
  - ARRHYTHMIA [None]
  - DIZZINESS [None]
  - BLOOD PRESSURE INCREASED [None]
  - HYPOTENSION [None]
  - FATIGUE [None]
  - JOINT SWELLING [None]
  - MUSCLE TIGHTNESS [None]
